FAERS Safety Report 5616620-2 (Version None)
Quarter: 2008Q1

REPORT INFORMATION
  Report Type: 
  Country: None (occurrence: None)
  Receive Date: 20080207
  Receipt Date: 20071129
  Transmission Date: 20080703
  Serious: Yes (Disabling)
  Sender: FDA-Public Use
  Company Number: A0691461A

PATIENT
  Age: 56 Year
  Sex: Female
  Weight: 57.3 kg

DRUGS (3)
  1. PAXIL [Suspect]
     Indication: DEPRESSION
     Dosage: 25MG PER DAY
     Route: 048
  2. VITAMINS [Concomitant]
  3. CALCIUM + VITAMIN D [Concomitant]

REACTIONS (2)
  - DISTURBANCE IN ATTENTION [None]
  - PARAESTHESIA [None]
